FAERS Safety Report 5706049-0 (Version None)
Quarter: 2008Q2

REPORT INFORMATION
  Report Type: 
  Country: None (occurrence: None)
  Receive Date: 20080415
  Receipt Date: 20080407
  Transmission Date: 20081010
  Serious: Yes (Hospitalization)
  Sender: FDA-Public Use
  Company Number: US-KINGPHARMUSA00001-K200800407

PATIENT
  Age: 79 Year
  Sex: Male

DRUGS (6)
  1. AVINZA [Suspect]
     Indication: MUSCULOSKELETAL CHEST PAIN
     Dosage: 30 MG, QD
     Route: 048
     Dates: start: 20080324, end: 20080301
  2. LASIX [Concomitant]
  3. DIOVAN                             /01319601/ [Concomitant]
  4. PERSANTINE [Concomitant]
  5. PROTONIX                           /01263201/ [Concomitant]
  6. LACTULOSE [Concomitant]

REACTIONS (2)
  - MENTAL STATUS CHANGES [None]
  - UNRESPONSIVE TO STIMULI [None]
